FAERS Safety Report 5190524-4 (Version None)
Quarter: 2006Q4

REPORT INFORMATION
  Report Type: 
  Country: None (occurrence: None)
  Receive Date: 20061222
  Receipt Date: 20061214
  Transmission Date: 20070319
  Serious: Yes (Death, Hospitalization)
  Sender: FDA-Public Use
  Company Number: GB-ROCHE-475018

PATIENT
  Age: 52 Year
  Sex: Male
  Weight: 63.7 kg

DRUGS (12)
  1. CAPECITABINE [Suspect]
     Dosage: GIVEN FOR 14 DAYS FOLLOWED BY A WEEK REST.
     Route: 048
     Dates: start: 20040116, end: 20040618
  2. GEMCITABINE [Suspect]
     Dosage: GIVEN ON DAYS ONE AND EIGHT OF A THREE WEEK CYCLE.
     Route: 042
     Dates: start: 20040116, end: 20040618
  3. ORAMORPH SR [Concomitant]
     Indication: PAIN
     Dosage: STARTED AT A DOSE OF 10 MG, INCREASED ON AN UNSPECIFIED DATE TO 15-20 MG, AND ON 06 JAN 05 INCREASE+
     Route: 048
     Dates: start: 20031004, end: 20050910
  4. SENNA [Concomitant]
     Indication: CONSTIPATION
     Dosage: STARTED WITH A DOSE OF 15 MG AND CHANGED ON AN UNSPECIFIED DATE TO 2 TAB.
     Route: 048
     Dates: start: 20031204
  5. INFUMORPH [Concomitant]
     Indication: PAIN
     Dosage: STARTED WITH A DOSE OF 30 MG DAILY, INCREASED TO 100 MG TWICE DAILY ON AN UNSPECIFIED DATE, AND ON +
     Route: 048
     Dates: start: 20031224
  6. ACETAMINOPHEN [Concomitant]
     Indication: PAIN
     Route: 048
     Dates: start: 20031218
  7. MIRTAZAPINE [Concomitant]
     Indication: DEPRESSION
     Route: 048
     Dates: start: 20040130
  8. DEXAMETHASONE [Concomitant]
     Dosage: INDICATION FOR DEXAMETHSONE REPORTED AS APPETITE.
     Route: 048
     Dates: start: 20041021
  9. LANSOPRAZOLE [Concomitant]
     Indication: ILL-DEFINED DISORDER
     Dosage: STARTED BETWEEN 08-15 MARCH 2005.
     Route: 048
     Dates: start: 20050308
  10. CYCLIZINE [Concomitant]
     Indication: NAUSEA
     Route: 048
     Dates: start: 20050307
  11. HALOPERIDOL [Concomitant]
     Indication: NAUSEA
     Dosage: STARTED BETWEEN 08-15 MARCH 2005.
     Route: 048
     Dates: start: 20050308
  12. ASILONE [Concomitant]
     Dosage: FREQUENCY ILLEGIBLE. STARTED BETWEEN 08-15 MARCH 2005.
     Route: 048
     Dates: start: 20050308

REACTIONS (8)
  - ANAEMIA [None]
  - BILE DUCT OBSTRUCTION [None]
  - LIVER FUNCTION TEST ABNORMAL [None]
  - NAUSEA [None]
  - PANCREATIC CARCINOMA [None]
  - PNEUMONIA [None]
  - PNEUMONIA PNEUMOCOCCAL [None]
  - WEIGHT DECREASED [None]
